FAERS Safety Report 6457724-4 (Version None)
Quarter: 2009Q4

REPORT INFORMATION
  Report Type: 
  Country: None (occurrence: None)
  Receive Date: 20091125
  Receipt Date: 20091117
  Transmission Date: 20100525
  Serious: Yes (Other)
  Sender: FDA-Public Use
  Company Number: US-PFIZER INC-2008032509

PATIENT
  Sex: Female
  Weight: 90.703 kg

DRUGS (16)
  1. CHANTIX [Suspect]
     Indication: SMOKING CESSATION THERAPY
     Dosage: UNK
     Route: 048
     Dates: start: 20080403, end: 20091001
  2. CYMBALTA [Concomitant]
     Dosage: 120 MG, 2X/DAY
     Route: 048
  3. LIPITOR [Concomitant]
     Route: 048
  4. PERPHENAZINE [Concomitant]
     Route: 048
  5. LYRICA [Concomitant]
     Dosage: 75 MG, UNK
     Route: 048
  6. KALETRA [Concomitant]
     Route: 048
  7. VESICARE [Concomitant]
     Dosage: 5 MG, 2X/DAY
     Route: 048
  8. PLAVIX [Concomitant]
     Dosage: 75 MG, 1X/DAY
     Route: 048
  9. ACETYLSALICYLIC ACID [Concomitant]
     Route: 048
  10. COPAXONE [Concomitant]
  11. TRILEPTAL [Concomitant]
     Dosage: FREQUENCY: 2X/DAY,
  12. PROVIGIL [Concomitant]
  13. CLONAZEPAM [Concomitant]
     Dosage: FREQUENCY: 3X/DAY,
  14. OLOPATADINE [Concomitant]
     Dosage: UNK
  15. GABAPENTIN [Concomitant]
     Dosage: 300 MG, 5X/DAY
  16. CHLORAZEPAM [Concomitant]

REACTIONS (11)
  - ANGER [None]
  - ANXIETY [None]
  - ASTHENIA [None]
  - EMOTIONAL DISORDER [None]
  - FEELING ABNORMAL [None]
  - FRUSTRATION [None]
  - LIGAMENT RUPTURE [None]
  - MEMORY IMPAIRMENT [None]
  - MULTIPLE SCLEROSIS [None]
  - NERVOUSNESS [None]
  - PAIN [None]
